FAERS Safety Report 19471223 (Version 1)
Quarter: 2021Q2

REPORT INFORMATION
  Report Type: Spontaneous
  Country: JP (occurrence: JP)
  Receive Date: 20210629
  Receipt Date: 20210629
  Transmission Date: 20210717
  Serious: Yes (Other)
  Sender: FDA-Public Use
  Company Number: NVSJ2021JP009438

PATIENT
  Age: 2 Year

DRUGS (2)
  1. VALPROATE NA [Concomitant]
     Active Substance: VALPROATE SODIUM
     Indication: PRODUCT USED FOR UNKNOWN INDICATION
     Dosage: 25 MG/KG
     Route: 065
  2. EVEROLIMUS. [Suspect]
     Active Substance: EVEROLIMUS
     Indication: TUBEROUS SCLEROSIS COMPLEX
     Dosage: 2 MG
     Route: 065

REACTIONS (4)
  - White matter lesion [Unknown]
  - Cerebral cyst [Unknown]
  - Cerebral atrophy [Unknown]
  - Tuberous sclerosis complex [Unknown]
